FAERS Safety Report 11919745 (Version 1)
Quarter: 2016Q1

REPORT INFORMATION
  Report Type: Spontaneous
  Country: US (occurrence: US)
  Receive Date: 20160115
  Receipt Date: 20160115
  Transmission Date: 20160526
  Serious: No
  Sender: FDA-Public Use
  Company Number: US-BAYER-2016-008360

PATIENT
  Age: 77 Year
  Sex: Male
  Weight: 122.45 kg

DRUGS (1)
  1. OXYTROL FOR WOMEN [Suspect]
     Active Substance: OXYBUTYNIN
     Indication: HYPERTONIC BLADDER
     Dosage: 1 EVERY 4 DAYS
     Route: 061
     Dates: start: 201509

REACTIONS (2)
  - Off label use [None]
  - Product use issue [None]
